FAERS Safety Report 6392528-2 (Version None)
Quarter: 2009Q4

REPORT INFORMATION
  Report Type: 
  Country: None (occurrence: None)
  Receive Date: 20091007
  Receipt Date: 20090930
  Transmission Date: 20100525
  Serious: Yes (Hospitalization)
  Sender: FDA-Public Use
  Company Number: US-ABBOTT-09P-163-0598794-00

PATIENT
  Sex: Female
  Weight: 50.848 kg

DRUGS (5)
  1. TRILIPIX [Suspect]
     Indication: BLOOD TRIGLYCERIDES INCREASED
     Dates: start: 20090201, end: 20090915
  2. DIAZIDE [Concomitant]
     Indication: HYPERTENSION
     Dosage: 37/25 MG
  3. TOPROL-XL [Concomitant]
     Indication: HYPERTENSION
  4. FISH OIL [Concomitant]
     Indication: DRUG USE FOR UNKNOWN INDICATION
  5. STEROIDS [Concomitant]
     Indication: DRUG USE FOR UNKNOWN INDICATION
     Dates: start: 20090901

REACTIONS (6)
  - AGRANULOCYTOSIS [None]
  - CONTUSION [None]
  - IDIOPATHIC THROMBOCYTOPENIC PURPURA [None]
  - PANCYTOPENIA [None]
  - PETECHIAE [None]
  - STOMATITIS [None]
